FAERS Safety Report 10471096 (Version 1)
Quarter: 2014Q3

REPORT INFORMATION
  Report Type: Report from Study
  Country: US (occurrence: US)
  Receive Date: 20140923
  Receipt Date: 20140923
  Transmission Date: 20150326
  Serious: Yes (Hospitalization)
  Sender: FDA-Public Use
  Company Number: US-BRISTOL-MYERS SQUIBB COMPANY-21405584

PATIENT
  Age: 63 Year
  Sex: Female
  Weight: 122.45 kg

DRUGS (3)
  1. SOTALOL. [Concomitant]
     Active Substance: SOTALOL
  2. ORENCIA [Suspect]
     Active Substance: ABATACEPT
     Dosage: LAST INFUSION WAS ON 15SEP2014?ORENCIA IV 4 VIALS
     Route: 042
  3. XARELTO [Concomitant]
     Active Substance: RIVAROXABAN

REACTIONS (1)
  - Atrial fibrillation [Unknown]
